FAERS Safety Report 6775204-3 (Version None)
Quarter: 2010Q2

REPORT INFORMATION
  Report Type: 
  Country: None (occurrence: None)
  Receive Date: 20100615
  Receipt Date: 20100615
  Transmission Date: 20101027
  Serious: Yes (Hospitalization)
  Sender: FDA-Public Use
  Company Number: None

PATIENT
  Sex: Female
  Weight: 45.6 kg

DRUGS (17)
  1. EXJADE [Suspect]
     Indication: CHELATION THERAPY
     Dosage: 125MG Q24 HOURS PO
     Route: 048
     Dates: start: 20100608, end: 20100608
  2. EXJADE [Suspect]
     Indication: CHELATION THERAPY
     Dosage: 500MG Q24 HOURS PO
     Route: 048
     Dates: start: 20100608, end: 20100608
  3. PLATELETS [Concomitant]
  4. GENTAMICIN [Concomitant]
  5. AMPHOTERICIN B [Concomitant]
  6. CEFEPIME [Concomitant]
  7. DIPHENHYDRAMINE [Concomitant]
  8. MICAFUNGIN [Concomitant]
  9. OXYMETAZOLINE NASAL SPRAY [Concomitant]
  10. SODIUM CHLORIDE NASAL SPRAY [Concomitant]
  11. AMLODIPINE [Concomitant]
  12. PREDNISONE [Concomitant]
  13. SENNA [Concomitant]
  14. BACTRIM [Concomitant]
  15. VALTREX [Concomitant]
  16. INSULIN ASPART SLIDING SCALE [Concomitant]
  17. MORPHINE [Concomitant]

REACTIONS (1)
  - LIVER FUNCTION TEST ABNORMAL [None]
